FAERS Safety Report 11278996 (Version 1)
Quarter: 2015Q3

REPORT INFORMATION
  Report Type: Spontaneous
  Country: JP (occurrence: JP)
  Receive Date: 20150717
  Receipt Date: 20150717
  Transmission Date: 20151125
  Serious: Yes (Other)
  Sender: FDA-Public Use
  Company Number: JP-CIPLA LTD.-2015JP05817

PATIENT

DRUGS (2)
  1. IRINOTECAN [Suspect]
     Active Substance: IRINOTECAN
     Indication: BREAST CANCER
     Dosage: 60 MG/M2 IN 5% DEXTROSE BY 120-MIN INFUSION ON DAYS 1, 8, AND 15 EVERY 4 WEEKS
  2. TEGAFUR/GIMERACIL/OTERACIL POTASSIUM [Suspect]
     Active Substance: GIMERACIL\OTERACIL\TEGAFUR
     Indication: BREAST CANCER
     Dosage: 80 MG/M2/DAY ORALLY ON DAYS 3-7, 10-14, AND 17-21 EVERY 4 WEEKS
     Route: 048

REACTIONS (1)
  - Disease progression [Unknown]
